FAERS Safety Report 13390536 (Version 2)
Quarter: 2017Q2

REPORT INFORMATION
  Report Type: Spontaneous
  Country: GB (occurrence: GB)
  Receive Date: 20170331
  Receipt Date: 20170506
  Transmission Date: 20170830
  Serious: Yes (Other)
  Sender: FDA-Public Use
  Company Number: GB-AUROBINDO-AUR-APL-2017-31845

PATIENT

DRUGS (6)
  1. LINEZOLID. [Suspect]
     Active Substance: LINEZOLID
     Dosage: 600 MG DILUTED IN 300 ML ON NORMAL SALINE
     Route: 042
  2. LINEZOLID. [Suspect]
     Active Substance: LINEZOLID
     Indication: ENTEROCOCCAL INFECTION
     Dosage: 600MG DILUTED IN 300ML NORMAL SALINE. 250 ML WAS ADMINSTERED INTRAVENOUSLY AND 50ML INTO AORTIC SAC
     Route: 042
  3. NORMAL SALINE [Concomitant]
     Active Substance: SODIUM CHLORIDE
     Dosage: 600 MG DILUTED IN 300 ML ON NORMAL SALINE
  4. NORMAL SALINE [Concomitant]
     Active Substance: SODIUM CHLORIDE
     Dosage: 600 MG DILUTED IN 300 ML ON NORMAL SALINE
     Route: 042
  5. LINEZOLID. [Suspect]
     Active Substance: LINEZOLID
     Dosage: 50ML WAS IRRIGATED DIRECTLY INTO THE AORTIC SAC, LEFT IN SAC FOR 2 HR, THEN ALLOWED TO DRAIN FR
     Route: 065
  6. LINEZOLID. [Suspect]
     Active Substance: LINEZOLID
     Dosage: 600 MG, UNK
     Route: 048

REACTIONS (2)
  - Wrong technique in product usage process [Unknown]
  - Bone marrow failure [Unknown]
